FAERS Safety Report 16768606 (Version 1)
Quarter: 2019Q3

REPORT INFORMATION
  Report Type: Spontaneous
  Country: US (occurrence: US)
  Receive Date: 20190715
  Receipt Date: 20190715
  Transmission Date: 20191005
  Serious: No
  Sender: FDA-Public Use
  Company Number: None

PATIENT
  Sex: Female

DRUGS (1)
  1. VERZENIO [Suspect]
     Active Substance: ABEMACICLIB
     Indication: BREAST CANCER
     Dosage: ?          OTHER FREQUENCY:TWICE;?
     Route: 048
     Dates: start: 20190319, end: 20190621

REACTIONS (2)
  - Diarrhoea [None]
  - Disease progression [None]
